FAERS Safety Report 5738049-9 (Version None)
Quarter: 2008Q2

REPORT INFORMATION
  Report Type: 
  Country: None (occurrence: None)
  Receive Date: 20080509
  Receipt Date: 20080304
  Transmission Date: 20081010
  Serious: Yes (Other)
  Sender: FDA-Public Use
  Company Number: WWISSUE-156

PATIENT
  Sex: Male

DRUGS (1)
  1. PREDNISONE TAB [Suspect]
     Indication: DERMATITIS CONTACT

REACTIONS (1)
  - HYPERTRICHOSIS [None]
